FAERS Safety Report 18973920 (Version 3)
Quarter: 2022Q3

REPORT INFORMATION
  Report Type: Report from Study
  Country: CO (occurrence: CO)
  Receive Date: 20210305
  Receipt Date: 20220825
  Transmission Date: 20221027
  Serious: Yes (Other)
  Sender: FDA-Public Use
  Company Number: NVSC2021CO042345

PATIENT
  Age: 37 Year
  Sex: Male
  Weight: 72 kg

DRUGS (3)
  1. ELTROMBOPAG OLAMINE [Suspect]
     Active Substance: ELTROMBOPAG OLAMINE
     Indication: Immune thrombocytopenia
     Dosage: 75 MG, QD
     Route: 048
     Dates: start: 201902
  2. ELTROMBOPAG OLAMINE [Suspect]
     Active Substance: ELTROMBOPAG OLAMINE
     Dosage: 50 MG, QD
     Route: 048
  3. AZATHIOPRINE [Concomitant]
     Active Substance: AZATHIOPRINE
     Indication: Immune thrombocytopenia
     Dosage: 50 MG, Q12H (START DATE WAS REPORTED AS 2 YEARS AGO)
     Route: 048

REACTIONS (15)
  - Renal failure [Unknown]
  - Blood creatinine increased [Unknown]
  - Protein urine present [Unknown]
  - Urine abnormality [Unknown]
  - Urinary sediment present [Unknown]
  - Pulmonary embolism [Unknown]
  - Deep vein thrombosis [Unknown]
  - Limb discomfort [Unknown]
  - Coagulation time shortened [Unknown]
  - Peripheral swelling [Unknown]
  - Fatigue [Unknown]
  - Bacterial test positive [Unknown]
  - Pruritus [Unknown]
  - Platelet count decreased [Unknown]
  - Platelet count increased [Unknown]

NARRATIVE: CASE EVENT DATE: 20210101
